FAERS Safety Report 10562769 (Version 1)
Quarter: 2014Q4

REPORT INFORMATION
  Report Type: Spontaneous
  Country: US (occurrence: US)
  Receive Date: 20141104
  Receipt Date: 20141104
  Transmission Date: 20150529
  Serious: No
  Sender: FDA-Public Use
  Company Number: US-SHIRE-US201407150

PATIENT
  Sex: Female

DRUGS (5)
  1. VYVANSE [Suspect]
     Active Substance: LISDEXAMFETAMINE DIMESYLATE
     Dosage: UNK UNK (SPLIT 50 MG CAPSULES), UNKNOWN
     Route: 048
     Dates: start: 201410
  2. MULTIVITAMINS [Concomitant]
     Active Substance: VITAMINS
     Indication: PRODUCT USED FOR UNKNOWN INDICATION
     Dosage: UNK, UNKNOWN
     Route: 065
  3. VYVANSE [Suspect]
     Active Substance: LISDEXAMFETAMINE DIMESYLATE
     Indication: ATTENTION DEFICIT/HYPERACTIVITY DISORDER
     Dosage: UNK UNK (SPLIT 50 MG CAPSULES), 1X/DAY:QD
     Route: 048
     Dates: start: 201408, end: 2014
  4. VYVANSE [Suspect]
     Active Substance: LISDEXAMFETAMINE DIMESYLATE
     Dosage: 50 MG, UNKNOWN
     Route: 048
     Dates: start: 2014, end: 201410
  5. PROZAC [Concomitant]
     Active Substance: FLUOXETINE HYDROCHLORIDE
     Indication: PRODUCT USED FOR UNKNOWN INDICATION
     Dosage: UNK, UNKNOWN
     Route: 065

REACTIONS (4)
  - Palpitations [Unknown]
  - Malaise [Unknown]
  - Heart rate increased [Recovered/Resolved]
  - Drug prescribing error [Not Recovered/Not Resolved]

NARRATIVE: CASE EVENT DATE: 2014
